FAERS Safety Report 5145218-8 (Version None)
Quarter: 2006Q4

REPORT INFORMATION
  Report Type: 
  Country: None (occurrence: None)
  Receive Date: 20061107
  Receipt Date: 20061024
  Transmission Date: 20070319
  Serious: Yes (Death)
  Sender: FDA-Public Use
  Company Number: US-ROCHE-468450

PATIENT
  Age: 65 Year
  Sex: Male

DRUGS (9)
  1. MYCOPHENOLATE MOFETIL [Suspect]
     Route: 065
  2. TACROLIMUS [Suspect]
     Route: 065
  3. TACROLIMUS [Suspect]
     Route: 065
  4. TACROLIMUS [Suspect]
     Route: 065
  5. PREDNISONE TAB [Suspect]
     Route: 065
  6. PREDNISONE TAB [Suspect]
     Dosage: DOSAGE LOWERED
     Route: 065
  7. AMPHOTERICIN B [Concomitant]
  8. 5-FC [Concomitant]
  9. FLUCONAZOLE [Concomitant]
     Route: 048

REACTIONS (1)
  - IMMUNE RECONSTITUTION SYNDROME [None]
